FAERS Safety Report 6068227-3 (Version None)
Quarter: 2009Q1

REPORT INFORMATION
  Report Type: 
  Country: None (occurrence: None)
  Receive Date: 20090206
  Receipt Date: 20090123
  Transmission Date: 20090719
  Serious: Yes (Hospitalization)
  Sender: FDA-Public Use
  Company Number: US-BAYER-DE-2007-005883

PATIENT
  Age: 60 Year
  Sex: Male
  Weight: 61 kg

DRUGS (14)
  1. CAMPATH [Suspect]
     Indication: CHRONIC LYMPHOCYTIC LEUKAEMIA
     Dosage: UNIT DOSE: 3 MG
     Route: 042
     Dates: start: 20070110, end: 20070110
  2. CAMPATH [Suspect]
     Route: 042
     Dates: start: 20070111, end: 20070111
  3. CAMPATH [Suspect]
     Route: 042
     Dates: start: 20070214, end: 20070215
  4. CAMPATH [Suspect]
     Route: 042
     Dates: start: 20070116, end: 20070118
  5. FLUDARABINE PHOSPHAT (SH L 573) (STUDY MEDICATION NOT GIVEN) [Suspect]
     Indication: CHRONIC LYMPHOCYTIC LEUKAEMIA
     Route: 042
     Dates: start: 20070116, end: 20070118
  6. FLUDARABINE PHOSPHAT (SH L 573) (STUDY MEDICATION NOT GIVEN) [Suspect]
     Route: 042
     Dates: start: 20070214, end: 20070215
  7. LORZAAR PLUS [Concomitant]
     Indication: RENAL FAILURE
  8. VALACYCLOVIR [Concomitant]
     Indication: PROPHYLAXIS
     Dates: start: 20070110
  9. COTRIM DS [Concomitant]
     Indication: PROPHYLAXIS
     Dates: start: 20070110
  10. ALLOPURINOL [Concomitant]
     Indication: PROPHYLAXIS
     Dates: start: 20070109, end: 20070114
  11. ACETAMINOPHEN [Concomitant]
     Indication: PROPHYLAXIS
     Dates: start: 20070110, end: 20070111
  12. IBUPROFEN [Concomitant]
     Indication: PAIN
     Dates: start: 20070108, end: 20070109
  13. DECOSTRIOL [Concomitant]
     Indication: RENAL FAILURE
     Dates: start: 20070109
  14. LASIX [Concomitant]
     Indication: OEDEMA
     Dates: start: 20070111, end: 20070112

REACTIONS (2)
  - RENAL FAILURE [None]
  - TUMOUR LYSIS SYNDROME [None]
